FAERS Safety Report 5618501-7 (Version None)
Quarter: 2008Q1

REPORT INFORMATION
  Report Type: 
  Country: None (occurrence: None)
  Receive Date: 20080207
  Receipt Date: 20080205
  Transmission Date: 20080703
  Serious: Yes (Other)
  Sender: FDA-Public Use
  Company Number: D0056060A

PATIENT
  Age: 8 Year

DRUGS (1)
  1. VIANI [Suspect]
     Indication: ASTHMA
     Route: 055
     Dates: start: 20060101

REACTIONS (4)
  - CONVULSION [None]
  - HEADACHE [None]
  - INFECTION [None]
  - SWELLING FACE [None]
